FAERS Safety Report 14228783 (Version 1)
Quarter: 2017Q4

REPORT INFORMATION
  Report Type: Spontaneous
  Country: RU (occurrence: RU)
  Receive Date: 20171128
  Receipt Date: 20171128
  Transmission Date: 20180321
  Serious: Yes (Hospitalization)
  Sender: FDA-Public Use
  Company Number: RU-ASTRAZENECA-2017SF20228

PATIENT
  Age: 80 Year
  Sex: Male
  Weight: 60 kg

DRUGS (1)
  1. BRILINTA [Suspect]
     Active Substance: TICAGRELOR
     Indication: MYOCARDIAL INFARCTION
     Route: 048
     Dates: start: 201704

REACTIONS (3)
  - Hypophagia [Unknown]
  - Weight decreased [Unknown]
  - Chest pain [Unknown]

NARRATIVE: CASE EVENT DATE: 201710
